FAERS Safety Report 24177304 (Version 1)
Quarter: 2024Q3

REPORT INFORMATION
  Report Type: Spontaneous
  Country: US (occurrence: US)
  Receive Date: 20240806
  Receipt Date: 20240806
  Transmission Date: 20241016
  Serious: No
  Sender: NOVARTIS
  Company Number: US-002147023-NVSC2024US159027

PATIENT
  Sex: Female

DRUGS (2)
  1. SANDIMMUNE [Suspect]
     Active Substance: CYCLOSPORINE
     Indication: Product used for unknown indication
     Dosage: 100 MG, QD
     Route: 065
  2. SANDIMMUNE [Suspect]
     Active Substance: CYCLOSPORINE

REACTIONS (2)
  - Product availability issue [Unknown]
  - Product dose omission issue [Unknown]
